FAERS Safety Report 8221782-7 (Version None)
Quarter: 2012Q1

REPORT INFORMATION
  Report Type: 
  Country: None (occurrence: None)
  Receive Date: 20120320
  Receipt Date: 20120320
  Transmission Date: 20120608
  Serious: Yes (Life-Threatening, Hospitalization)
  Sender: FDA-Public Use
  Company Number: None

PATIENT
  Age: 39 Year
  Sex: Male
  Weight: 107.67 kg

DRUGS (4)
  1. KEPPRA [Suspect]
  2. AVASTIN [Suspect]
  3. INVANZ [Suspect]
     Indication: DIVERTICULAR PERFORATION
     Dates: start: 20120303, end: 20120303
  4. TEMODAR [Suspect]

REACTIONS (3)
  - CONVULSION [None]
  - DIVERTICULAR PERFORATION [None]
  - ESCHERICHIA TEST POSITIVE [None]
